FAERS Safety Report 6994276-4 (Version None)
Quarter: 2010Q3

REPORT INFORMATION
  Report Type: 
  Country: None (occurrence: None)
  Receive Date: 20100917
  Receipt Date: 20100907
  Transmission Date: 20110219
  Serious: Yes (Other)
  Sender: FDA-Public Use
  Company Number: CH-ELI_LILLY_AND_COMPANY-CH201009002376

PATIENT
  Age: 31 Year
  Sex: Female
  Weight: 71 kg

DRUGS (6)
  1. ZYPREXA [Suspect]
     Dosage: UNK MG,
     Route: 065
     Dates: start: 20100705, end: 20100705
  2. ZYPREXA [Suspect]
     Dosage: 10 MG, DAILY (1/D)
     Route: 065
     Dates: start: 20100706, end: 20100710
  3. ZYPREXA [Suspect]
     Dosage: 5 MG, DAILY (1/D)
     Route: 065
     Dates: start: 20100711, end: 20100711
  4. ZYPREXA [Suspect]
     Dosage: 20 MG, DAILY (1/D)
     Route: 065
     Dates: start: 20100713, end: 20100713
  5. ZYPREXA [Suspect]
     Dosage: UNK, UNKNOWN
     Route: 065
     Dates: start: 20100714, end: 20100714
  6. LEPONEX [Concomitant]
     Dosage: 12.5 MG, 2/D
     Route: 065
     Dates: start: 20100715

REACTIONS (4)
  - AGITATION [None]
  - DRUG EXPOSURE DURING PREGNANCY [None]
  - DRUG INEFFECTIVE [None]
  - INSOMNIA [None]
